FAERS Safety Report 7884643-9 (Version None)
Quarter: 2011Q4

REPORT INFORMATION
  Report Type: 
  Country: None (occurrence: None)
  Receive Date: 20111102
  Receipt Date: 20111025
  Transmission Date: 20120403
  Serious: Yes (Hospitalization)
  Sender: FDA-Public Use
  Company Number: CA-MERCK-1110USA03892

PATIENT
  Age: 85 Year
  Sex: Female

DRUGS (7)
  1. RAMIPRIL [Concomitant]
     Route: 048
  2. FERROUS GLUCONATE [Concomitant]
     Route: 048
  3. METFORMIN [Concomitant]
     Route: 048
  4. ATORVASTATIN CALCIUM [Concomitant]
     Route: 048
  5. JANUVIA [Suspect]
     Route: 048
  6. DILTIAZEM HYDROCHLORIDE [Concomitant]
     Route: 048
  7. LANSOPRAZOLE [Concomitant]
     Route: 048

REACTIONS (6)
  - PANCREATIC MASS [None]
  - BILE DUCT STENOSIS [None]
  - PANCREATIC ATROPHY [None]
  - HYPERGLYCAEMIA [None]
  - CONFUSIONAL STATE [None]
  - PANCREATITIS ACUTE [None]
